FAERS Safety Report 24392428 (Version 1)
Quarter: 2024Q4

REPORT INFORMATION
  Report Type: Spontaneous
  Country: KR (occurrence: KR)
  Receive Date: 20241003
  Receipt Date: 20241003
  Transmission Date: 20250114
  Serious: Yes (Other)
  Sender: BRISTOL MYERS SQUIBB
  Company Number: KR-BRISTOL-MYERS SQUIBB COMPANY-2024-154703

PATIENT
  Age: 56 Year
  Sex: Male
  Weight: 67 kg

DRUGS (41)
  1. BARACLUDE [Suspect]
     Active Substance: ENTECAVIR
     Indication: Product used for unknown indication
     Dates: start: 20200911
  2. FENTANYL [Concomitant]
     Active Substance: FENTANYL
     Indication: Product used for unknown indication
     Dates: start: 20201201, end: 20201207
  3. FENTANYL [Concomitant]
     Active Substance: FENTANYL
     Dates: start: 20201128, end: 20201130
  4. FENTANYL [Concomitant]
     Active Substance: FENTANYL
     Dates: start: 20201006, end: 20201127
  5. FENTANYL [Concomitant]
     Active Substance: FENTANYL
     Dates: start: 20210128
  6. FENTANYL [Concomitant]
     Active Substance: FENTANYL
     Dates: start: 20201026, end: 20201127
  7. FENTANYL [Concomitant]
     Active Substance: FENTANYL
     Dates: start: 20201208, end: 20210127
  8. FENTANYL [Concomitant]
     Active Substance: FENTANYL
     Dates: start: 20201208, end: 20210127
  9. FAMOTIDINE [Concomitant]
     Active Substance: FAMOTIDINE
     Indication: Product used for unknown indication
     Dates: start: 20201216, end: 20201216
  10. FAMOTIDINE [Concomitant]
     Active Substance: FAMOTIDINE
     Dates: start: 20210107, end: 20210107
  11. FAMOTIDINE [Concomitant]
     Active Substance: FAMOTIDINE
     Dates: start: 20210122, end: 20210122
  12. FAMOTIDINE [Concomitant]
     Active Substance: FAMOTIDINE
     Dates: start: 20201223, end: 20201223
  13. FAMOTIDINE [Concomitant]
     Active Substance: FAMOTIDINE
     Dates: start: 20201124, end: 20201124
  14. SILODOSIN [Concomitant]
     Active Substance: SILODOSIN
     Indication: Product used for unknown indication
     Dates: start: 20210106
  15. BETHANECHOL CHLORIDE [Concomitant]
     Active Substance: BETHANECHOL CHLORIDE
     Indication: Product used for unknown indication
     Dates: start: 20210106
  16. FINASTERIDE [Concomitant]
     Active Substance: FINASTERIDE
     Indication: Product used for unknown indication
     Dates: start: 202009
  17. LACTULOSE [Concomitant]
     Active Substance: LACTULOSE
     Indication: Product used for unknown indication
     Dosage: CONCENTRATE SOLUTION
     Dates: start: 20200916
  18. DOCUSATE SODIUM [Concomitant]
     Active Substance: DOCUSATE SODIUM
     Indication: Product used for unknown indication
     Dates: start: 20201130
  19. BISACODYL [Concomitant]
     Active Substance: BISACODYL
     Indication: Product used for unknown indication
     Dates: start: 20201130
  20. MAGNESIUM HYDROXIDE [Concomitant]
     Active Substance: MAGNESIUM HYDROXIDE
     Indication: Product used for unknown indication
     Dates: start: 20200916
  21. MEGESTROL ACETATE [Concomitant]
     Active Substance: MEGESTROL ACETATE
     Indication: Product used for unknown indication
     Dates: start: 20201027
  22. CHLORPHENIRAMINE MALEATE [Concomitant]
     Active Substance: CHLORPHENIRAMINE MALEATE
     Indication: Product used for unknown indication
     Dates: start: 20201124, end: 20201124
  23. CHLORPHENIRAMINE MALEATE [Concomitant]
     Active Substance: CHLORPHENIRAMINE MALEATE
     Dates: start: 20210107, end: 20210107
  24. CHLORPHENIRAMINE MALEATE [Concomitant]
     Active Substance: CHLORPHENIRAMINE MALEATE
     Dates: start: 20201223, end: 20201223
  25. MEGESTROL ACETATE [Concomitant]
     Active Substance: MEGESTROL ACETATE
     Indication: Product used for unknown indication
     Dates: start: 20201027
  26. DEXAMETHASONE [Concomitant]
     Active Substance: DEXAMETHASONE
     Indication: Product used for unknown indication
     Dates: start: 20201223, end: 20201223
  27. DEXAMETHASONE [Concomitant]
     Active Substance: DEXAMETHASONE
     Dates: start: 20210107, end: 20210107
  28. DEXAMETHASONE [Concomitant]
     Active Substance: DEXAMETHASONE
     Dates: start: 20201124, end: 20201124
  29. DEXAMETHASONE [Concomitant]
     Active Substance: DEXAMETHASONE
     Dates: start: 20201216, end: 20201216
  30. DEXAMETHASONE [Concomitant]
     Active Substance: DEXAMETHASONE
     Dates: start: 20210122, end: 20210122
  31. ZOLPIDEM TARTRATE [Concomitant]
     Active Substance: ZOLPIDEM TARTRATE
     Indication: Product used for unknown indication
     Dates: start: 20201117
  32. PACLITAXEL [Concomitant]
     Active Substance: PACLITAXEL
     Indication: Product used for unknown indication
     Dates: start: 20210122, end: 20210122
  33. PACLITAXEL [Concomitant]
     Active Substance: PACLITAXEL
     Dates: start: 20201223, end: 20201223
  34. PACLITAXEL [Concomitant]
     Active Substance: PACLITAXEL
     Dates: start: 20210107, end: 20210107
  35. PACLITAXEL [Concomitant]
     Active Substance: PACLITAXEL
     Dates: start: 20201216, end: 20201216
  36. PACLITAXEL [Concomitant]
     Active Substance: PACLITAXEL
     Dates: start: 20201124, end: 20201124
  37. OXYCODONE HYDROCHLORIDE [Concomitant]
     Active Substance: OXYCODONE HYDROCHLORIDE
     Indication: Product used for unknown indication
     Dates: start: 20200809
  38. ACETAMINOPHEN [Concomitant]
     Active Substance: ACETAMINOPHEN
     Indication: Product used for unknown indication
     Dates: start: 20210107, end: 20210107
  39. ACETAMINOPHEN [Concomitant]
     Active Substance: ACETAMINOPHEN
     Dates: start: 20201124, end: 20201124
  40. ACETAMINOPHEN [Concomitant]
     Active Substance: ACETAMINOPHEN
     Dates: start: 20201223, end: 20201223
  41. PREGABALIN [Concomitant]
     Active Substance: PREGABALIN
     Indication: Product used for unknown indication
     Dates: start: 20201223

REACTIONS (8)
  - Abdominal pain [Recovered/Resolved]
  - Dysuria [Recovered/Resolved]
  - Ascites [Not Recovered/Not Resolved]
  - Abdominal distension [Recovering/Resolving]
  - Oedema peripheral [Recovered/Resolved]
  - Neutropenia [Recovered/Resolved]
  - Asthenia [Recovering/Resolving]
  - Neurogenic bladder [Recovering/Resolving]

NARRATIVE: CASE EVENT DATE: 20201125
